FAERS Safety Report 8005610-0 (Version None)
Quarter: 2011Q4

REPORT INFORMATION
  Report Type: 
  Country: None (occurrence: None)
  Receive Date: 20111223
  Receipt Date: 20111215
  Transmission Date: 20120403
  Serious: Yes (Death, Hospitalization)
  Sender: FDA-Public Use
  Company Number: CA-SANOFI-AVENTIS-2011SA079541

PATIENT
  Age: 74 Year
  Sex: Male
  Weight: 98 kg

DRUGS (10)
  1. SIMVASTATIN [Concomitant]
     Dates: start: 20100912
  2. BUDESONIDE W/FORMOTEROL FUMARATE [Concomitant]
     Dates: start: 20090101
  3. ACETAMINOPHEN [Concomitant]
     Dates: start: 20110622
  4. COUMADIN [Concomitant]
     Dates: start: 20100912, end: 20110901
  5. OXYBUTYNIN [Concomitant]
     Dates: start: 20100101
  6. INVESTIGATIONAL DRUG [Suspect]
     Indication: BLADDER TRANSITIONAL CELL CARCINOMA METASTATIC
     Dosage: DAY 1 OF 21 DAY CYCLE
     Route: 042
     Dates: start: 20110825, end: 20110825
  7. BISOPROLOL [Concomitant]
     Dates: start: 20100912
  8. ASPIRIN [Concomitant]
     Dates: start: 20100912
  9. DEXAMETHASONE [Concomitant]
     Dates: start: 20110824, end: 20110826
  10. DOCETAXEL [Suspect]
     Indication: BLADDER TRANSITIONAL CELL CARCINOMA METASTATIC
     Dosage: DAY 1 OF 21 DAY CYCLE
     Route: 041
     Dates: start: 20110825, end: 20110825

REACTIONS (6)
  - FEBRILE NEUTROPENIA [None]
  - DECREASED APPETITE [None]
  - GASTRIC ULCER [None]
  - OESOPHAGITIS [None]
  - ORAL CANDIDIASIS [None]
  - HAEMORRHAGE [None]
